FAERS Safety Report 16013469 (Version 4)
Quarter: 2019Q2

REPORT INFORMATION
  Report Type: Spontaneous
  Country: GR (occurrence: GR)
  Receive Date: 20190227
  Receipt Date: 20190411
  Transmission Date: 20190711
  Serious: Yes (Other)
  Sender: FDA-Public Use
  Company Number: SE-PROVELL PHARMACEUTICALS-2063274

PATIENT
  Sex: Female

DRUGS (5)
  1. EUTHYROX [Suspect]
     Active Substance: LEVOTHYROXINE SODIUM
     Dates: start: 201812
  2. EUTHYROX [Suspect]
     Active Substance: LEVOTHYROXINE SODIUM
     Indication: HYPOTHYROIDISM
     Dates: start: 201803
  3. EUTHYROX [Suspect]
     Active Substance: LEVOTHYROXINE SODIUM
  4. VALDOXAN [Concomitant]
     Active Substance: AGOMELATINE
  5. EUTHYROX [Suspect]
     Active Substance: LEVOTHYROXINE SODIUM

REACTIONS (26)
  - Dementia [None]
  - Dry skin [Recovered/Resolved]
  - Ear pain [Recovered/Resolved]
  - Depressed mood [Recovered/Resolved]
  - Listless [Recovered/Resolved]
  - Blood thyroid stimulating hormone increased [Recovering/Resolving]
  - Tendon pain [Recovered/Resolved]
  - Tinnitus [Recovered/Resolved]
  - Ill-defined disorder [Recovered/Resolved]
  - Allergy to metals [Recovered/Resolved]
  - Thyroxine decreased [Recovering/Resolving]
  - Insomnia [Recovered/Resolved]
  - Fatigue [Recovered/Resolved]
  - Alopecia [Not Recovered/Not Resolved]
  - Diarrhoea [Recovered/Resolved]
  - Arthralgia [Recovered/Resolved]
  - Tendon injury [Recovered/Resolved]
  - Sexual dysfunction [Recovered/Resolved]
  - Poor quality product administered [None]
  - Wrong technique in product usage process [None]
  - Pulmonary pain [Recovered/Resolved]
  - Neuralgia [Recovered/Resolved]
  - Sluggishness [None]
  - Product dispensing error [None]
  - Dysarthria [Recovered/Resolved]
  - Product storage error [None]

NARRATIVE: CASE EVENT DATE: 201812
